FAERS Safety Report 11757932 (Version 1)
Quarter: 2015Q4

REPORT INFORMATION
  Report Type: Report from Study
  Country: US (occurrence: None)
  Receive Date: 20151117
  Receipt Date: 20151117
  Transmission Date: 20160304
  Serious: Yes (Other)
  Sender: FDA-Public Use
  Company Number: 2015US003191

PATIENT
  Age: 74 Year
  Sex: Male
  Weight: 91.2 kg

DRUGS (10)
  1. LISINOPRIL (LISINOPRIL) [Concomitant]
     Active Substance: LISINOPRIL
  2. AMLODIPINE [Concomitant]
     Active Substance: AMLODIPINE BESYLATE
  3. CITALOPRAM (CITALOPRAM) [Concomitant]
     Active Substance: CITALOPRAM HYDROBROMIDE
  4. GLASSIA [Suspect]
     Active Substance: .ALPHA.1-PROTEINASE INHIBITOR HUMAN
     Indication: ALPHA-1 ANTI-TRYPSIN DEFICIENCY
     Route: 042
     Dates: start: 20140307
  5. OXYBUTYNIN (OXYBUTYNIN) [Concomitant]
     Active Substance: OXYBUTYNIN
  6. CLONAZEPAM (CLONAZEPAM) [Concomitant]
     Active Substance: CLONAZEPAM
  7. OMEPRAZOLE (OMEPRAZOLE) [Concomitant]
     Active Substance: OMEPRAZOLE
  8. TAMSULOSIN (TAMSULOSIN) [Concomitant]
     Active Substance: TAMSULOSIN
  9. FINASTERIDE (FINASTERIDE) [Concomitant]
     Active Substance: FINASTERIDE
  10. ASPIRIN /00002701/ (ACETYLSALICYLIC ACID) [Concomitant]

REACTIONS (2)
  - Bronchitis chronic [None]
  - Chronic obstructive pulmonary disease [None]

NARRATIVE: CASE EVENT DATE: 20140827
